FAERS Safety Report 5306810-0 (Version None)
Quarter: 2007Q2

REPORT INFORMATION
  Report Type: 
  Country: None (occurrence: None)
  Receive Date: 20070425
  Receipt Date: 20070416
  Transmission Date: 20071010
  Serious: Yes (Death, Hospitalization)
  Sender: FDA-Public Use
  Company Number: FR-JNJFOC-20070301381

PATIENT
  Age: 71 Year
  Sex: Female

DRUGS (8)
  1. REMICADE [Suspect]
     Indication: RHEUMATOID ARTHRITIS
     Dosage: FOR A TOTAL OF 20 TREATMENTS THAT WERE EVERY SIX TO EIGHT WEEKS
     Route: 042
  2. ALDACTONE [Suspect]
     Indication: HYPERTENSION
     Route: 048
  3. CORTANCYL [Suspect]
     Indication: RHEUMATOID ARTHRITIS
     Route: 048
  4. DIGITALINE NATIVELLE [Suspect]
     Indication: DRUG USE FOR UNKNOWN INDICATION
     Dosage: DOSE:  ^5 DF QW^
     Route: 048
  5. LASIX [Suspect]
     Indication: HYPERTENSION
     Route: 048
  6. PREVISCAN [Suspect]
     Indication: DRUG USE FOR UNKNOWN INDICATION
     Route: 048
  7. CALCIPRAT [Concomitant]
  8. XALATAN [Concomitant]

REACTIONS (2)
  - CENTRAL NERVOUS SYSTEM LYMPHOMA [None]
  - LYMPHOMA [None]
